FAERS Safety Report 4566327-8 (Version None)
Quarter: 2005Q1

REPORT INFORMATION
  Report Type: 
  Country: None (occurrence: None)
  Receive Date: 20050126
  Receipt Date: 20050126
  Transmission Date: 20050727
  Serious: No
  Sender: FDA-Public Use
  Company Number: None

PATIENT
  Sex: Male
  Weight: 86 kg

DRUGS (8)
  1. FLUCONAZOLE [Suspect]
     Indication: CANDIDIASIS
     Dosage: 400 MG  DAILY INTRAVENOUS
     Route: 042
     Dates: start: 20040916, end: 20040922
  2. FLUCONAZOLE [Suspect]
     Indication: FUNGAEMIA
     Dosage: 400 MG  DAILY INTRAVENOUS
     Route: 042
     Dates: start: 20040916, end: 20040922
  3. PROTONIX [Concomitant]
  4. ACETAMINOPHEN [Concomitant]
  5. NYSTATIN [Concomitant]
  6. CHLORHEXIDINE [Concomitant]
  7. INSULIN [Concomitant]
  8. BENADRYL [Concomitant]

REACTIONS (1)
  - PLATELET COUNT DECREASED [None]
